FAERS Safety Report 9779102 (Version 2)
Quarter: 2013Q4

REPORT INFORMATION
  Report Type: Spontaneous
  Country: CA (occurrence: CA)
  Receive Date: 20131223
  Receipt Date: 20131223
  Transmission Date: 20140711
  Serious: Yes (Other)
  Sender: FDA-Public Use
  Company Number: CA-ELI_LILLY_AND_COMPANY-CA201204003532

PATIENT
  Age: 13 Year
  Sex: Male

DRUGS (5)
  1. STRATTERA [Suspect]
     Indication: ATTENTION DEFICIT/HYPERACTIVITY DISORDER
     Dosage: 100 MG, QD
     Dates: start: 20110428, end: 20111010
  2. STRATTERA [Suspect]
     Dosage: 1 DF, UNK
  3. STRATTERA [Suspect]
     Dosage: 80 MG, UNK
     Dates: start: 20110317, end: 20111017
  4. BRICANYL [Concomitant]
     Indication: ASTHMA EXERCISE INDUCED
  5. PULMICORT [Concomitant]
     Indication: UPPER RESPIRATORY TRACT INFECTION
     Dosage: UNK, PRN

REACTIONS (5)
  - Dizziness [Recovered/Resolved]
  - Syncope [Recovered/Resolved]
  - Fatigue [Recovered/Resolved]
  - Hypertension [Recovered/Resolved]
  - Prescribed overdose [Recovered/Resolved]
